FAERS Safety Report 14239431 (Version 2)
Quarter: 2018Q4

REPORT INFORMATION
  Report Type: Spontaneous
  Country: FR (occurrence: FR)
  Receive Date: 20171130
  Receipt Date: 20181029
  Transmission Date: 20190204
  Serious: Yes (Other)
  Sender: FDA-Public Use
  Company Number: FR-OTSUKA-2017_025827

PATIENT
  Age: 16 Year
  Sex: Male

DRUGS (12)
  1. ABILIFY MAINTENA [Suspect]
     Active Substance: ARIPIPRAZOLE
     Indication: ABNORMAL BEHAVIOUR
  2. ABILIFY MAINTENA [Suspect]
     Active Substance: ARIPIPRAZOLE
     Indication: AFFECTIVE DISORDER
  3. DEPAKINE [Suspect]
     Active Substance: VALPROATE SODIUM
     Indication: AFFECTIVE DISORDER
  4. TERCIAN [Suspect]
     Active Substance: CYAMEMAZINE
     Indication: IMPULSIVE BEHAVIOUR
     Dosage: 25 MG, QID
     Route: 048
     Dates: start: 2006, end: 20171122
  5. TERCIAN [Suspect]
     Active Substance: CYAMEMAZINE
     Indication: AGGRESSION
  6. TERCIAN [Suspect]
     Active Substance: CYAMEMAZINE
     Indication: AFFECTIVE DISORDER
  7. ABILIFY MAINTENA [Suspect]
     Active Substance: ARIPIPRAZOLE
     Indication: IMPULSIVE BEHAVIOUR
     Dosage: 300 MG, QM
     Route: 030
     Dates: start: 2006, end: 20171122
  8. ABILIFY MAINTENA [Suspect]
     Active Substance: ARIPIPRAZOLE
     Indication: AGGRESSION
  9. DEPAKINE [Suspect]
     Active Substance: VALPROATE SODIUM
     Indication: ABNORMAL BEHAVIOUR
  10. TERCIAN [Suspect]
     Active Substance: CYAMEMAZINE
     Indication: ABNORMAL BEHAVIOUR
  11. DEPAKINE [Suspect]
     Active Substance: VALPROATE SODIUM
     Indication: AGGRESSION
  12. DEPAKINE [Suspect]
     Active Substance: VALPROATE SODIUM
     Indication: IMPULSIVE BEHAVIOUR
     Dosage: 500 MG, TWICE DAILY
     Route: 048
     Dates: start: 2006, end: 20171122

REACTIONS (5)
  - Anaemia [Unknown]
  - Prescribed underdose [Unknown]
  - Product use in unapproved indication [Unknown]
  - Product use issue [Unknown]
  - Neutropenia [Unknown]

NARRATIVE: CASE EVENT DATE: 2016
